FAERS Safety Report 9898936 (Version 2)
Quarter: 2014Q1

REPORT INFORMATION
  Report Type: Spontaneous
  Country: FR (occurrence: FR)
  Receive Date: 20140214
  Receipt Date: 20140214
  Transmission Date: 20141002
  Serious: Yes (Death, Hospitalization)
  Sender: FDA-Public Use
  Company Number: FR-ELI_LILLY_AND_COMPANY-FR201303005229

PATIENT
  Age: 52 Year
  Sex: Male
  Weight: 60 kg

DRUGS (7)
  1. GEMZAR [Suspect]
     Indication: ADENOCARCINOMA PANCREAS
     Dosage: UNK
     Dates: start: 201201, end: 201210
  2. OXALIPLATIN [Concomitant]
     Indication: ADENOCARCINOMA PANCREAS
     Dosage: UNK
     Dates: start: 201201, end: 201204
  3. CREON [Concomitant]
     Dosage: UNK
  4. NOCTAMIDE [Concomitant]
     Dosage: UNK
  5. IXPRIM [Concomitant]
     Dosage: UNK
  6. ESOMEPRAZOLE [Concomitant]
     Dosage: UNK
  7. AUGMENTIN [Concomitant]
     Dosage: UNK

REACTIONS (4)
  - Septic shock [Fatal]
  - Malignant neoplasm progression [Fatal]
  - Interstitial lung disease [Recovering/Resolving]
  - Paraesthesia [Unknown]
